FAERS Safety Report 23922247 (Version 1)
Quarter: 2024Q2

REPORT INFORMATION
  Report Type: Spontaneous
  Country: GB (occurrence: GB)
  Receive Date: 20240531
  Receipt Date: 20240531
  Transmission Date: 20240716
  Serious: Yes (Other)
  Sender: FDA-Public Use
  Company Number: GB-ABBVIE-5473798

PATIENT
  Age: 74 Year
  Sex: Female

DRUGS (34)
  1. ALENDRONIC ACID [Suspect]
     Active Substance: ALENDRONIC ACID
     Indication: Product used for unknown indication
     Dosage: UNK, EVERY WEEK
     Route: 050
  2. ALENDRONIC ACID [Suspect]
     Active Substance: ALENDRONIC ACID
     Dosage: 70 MILLIGRAM, EVERY WEEK (ONCE WEEKLY EACH SUNDAY)
     Route: 050
  3. CARBIDOPA\LEVODOPA [Suspect]
     Active Substance: CARBIDOPA\LEVODOPA
     Indication: Parkinson^s disease
     Dosage: CR: 4.2MLS, ED:2.5MLS, 20MG/5MGDRUG START DATE WAS 2023; ;
     Route: 050
     Dates: end: 202310
  4. CARBIDOPA\LEVODOPA [Suspect]
     Active Substance: CARBIDOPA\LEVODOPA
     Dosage: CONTINUOUS RATE 4.2MLS/HR. EXTRA DOSE 2.5MLS, MORNING DOSE 12.0MLS, 20MG/5MGEND DATE - 2023; ;
     Route: 050
     Dates: start: 20231031
  5. CARBIDOPA\LEVODOPA [Suspect]
     Active Substance: CARBIDOPA\LEVODOPA
     Dosage: MD: 12.0 MLS, CR: 4.3 ML/HR, ED:2.6ML; ;
     Route: 050
     Dates: start: 2023, end: 2023
  6. CARBIDOPA\LEVODOPA [Suspect]
     Active Substance: CARBIDOPA\LEVODOPA
     Dosage: MORNING DOSE 12.0MLS, CR: 4.0MLS, ED:2.5MLS, 20MG/5MG; ;
     Route: 050
     Dates: start: 202310, end: 20231031
  7. CARBIDOPA\LEVODOPA [Suspect]
     Active Substance: CARBIDOPA\LEVODOPA
     Dosage: MD: 12.0 MLS, CR: 4.3 ML/HR, ED:2.6MLDRUG START DATE AND END DATE WAS 2023; ;
     Route: 050
  8. CARBIDOPA\LEVODOPA [Suspect]
     Active Substance: CARBIDOPA\LEVODOPA
     Dosage: CR: 4.2MLS, ED:2.5MLS, 20MG/5MG; ;
     Route: 050
     Dates: start: 2023, end: 202310
  9. CARBIDOPA\LEVODOPA [Suspect]
     Active Substance: CARBIDOPA\LEVODOPA
     Dosage: MD: 12.0 CR: 4.9 ED: 2.9; ;
     Route: 050
  10. CARBIDOPA\LEVODOPA [Suspect]
     Active Substance: CARBIDOPA\LEVODOPA
     Indication: Parkinson^s disease
     Dosage: MD: 12.0 CR: 4.9 ED: 2.9; ;
     Route: 050
  11. CARBIDOPA\LEVODOPA [Suspect]
     Active Substance: CARBIDOPA\LEVODOPA
     Dosage: CR: 4.2MLS, ED:2.5MLS, 20MG/5MGDRUG START DATE WAS 2023; ;
     Route: 050
     Dates: end: 202310
  12. CARBIDOPA\LEVODOPA [Suspect]
     Active Substance: CARBIDOPA\LEVODOPA
     Dosage: MD: 12.0 CR: 4.9 ED: 2.9; ;
     Route: 065
  13. CARBIDOPA\LEVODOPA [Suspect]
     Active Substance: CARBIDOPA\LEVODOPA
     Dosage: CR: 4.2MLS, ED:2.5MLS, 20MG/5MG; ;
     Route: 050
     Dates: start: 2023, end: 202310
  14. CARBIDOPA\LEVODOPA [Suspect]
     Active Substance: CARBIDOPA\LEVODOPA
     Dosage: MD: 12.0 MLS, CONTINUOUS RATE 4.4MLS/HR AND EXTRA DOSE 2.7MLSDRUG START DATE AND END DATE WAS 20..
     Route: 050
     Dates: start: 2023
  15. CARBIDOPA\LEVODOPA [Suspect]
     Active Substance: CARBIDOPA\LEVODOPA
     Dosage: MD: 12.0 MLS, CR: 4.3 ML/HR, ED:2.6ML; ;
     Route: 050
     Dates: start: 2023
  16. CARBIDOPA\LEVODOPA [Suspect]
     Active Substance: CARBIDOPA\LEVODOPA
     Dosage: MORNING DOSE 12.0MLS, CR: 4.0MLS, ED:2.5MLS, 20MG/5MG; ;
     Route: 050
     Dates: start: 202310
  17. CARBIDOPA\LEVODOPA [Suspect]
     Active Substance: CARBIDOPA\LEVODOPA
     Dosage: CONTINUOUS RATE 4.2MLS/HR. EXTRA DOSE 2.5MLS, MORNING DOSE 12.0MLS, 20MG/5MGEND DATE - 2023; ;
     Route: 050
     Dates: start: 20231031
  18. CALCIUM CARBONATE\CHOLECALCIFEROL [Concomitant]
     Active Substance: CALCIUM CARBONATE\CHOLECALCIFEROL
     Indication: Product used for unknown indication
     Dosage: UNK
     Route: 065
  19. MIRABEGRON [Concomitant]
     Active Substance: MIRABEGRON
     Indication: Product used for unknown indication
     Dosage: 25 MILLIGRAM
     Route: 065
  20. CHOLECALCIFEROL [Concomitant]
     Active Substance: CHOLECALCIFEROL
     Indication: Product used for unknown indication
     Dosage: 1000 DOSAGE FORM
     Route: 065
  21. BENSERAZIDE HYDROCHLORIDE\LEVODOPA [Concomitant]
     Active Substance: BENSERAZIDE HYDROCHLORIDE\LEVODOPA
     Indication: Product used for unknown indication
     Dosage: UNK (62.5 MGFREQUENCY TEXT: RARELY TAKEN)
     Route: 065
  22. DESMOPRESSIN [Concomitant]
     Active Substance: DESMOPRESSIN
     Indication: Micturition urgency
     Dosage: 20 UG, 10 MCG PER DOSE 2 SPRAYSNASAL SPRAY FREQUENCY TEXT: NIGHT
     Route: 065
  23. BUDESONIDE\FORMOTEROL [Concomitant]
     Active Substance: BUDESONIDE\FORMOTEROL
     Indication: Product used for unknown indication
     Dosage: 160/4.5 MCG INHALERFREQUENCY TEXT: 1 DOSE TWICE DAILY; ;
     Route: 065
  24. BUDESONIDE\FORMOTEROL [Concomitant]
     Active Substance: BUDESONIDE\FORMOTEROL
     Dosage: 160/4.5 MCG INHALERFREQUENCY TEXT: 1 DOSE TWICE DAILY
  25. POLYETHYLENE GLYCOLS [Concomitant]
     Active Substance: POLYETHYLENE GLYCOLS
     Indication: Product used for unknown indication
     Dosage: SACHETS 1-2 DAILY
     Route: 065
  26. MELATONIN [Concomitant]
     Active Substance: MELATONIN
     Indication: Product used for unknown indication
     Dosage: 2 MG TAKEN 1 HOUR BEFORE BEDMR
     Route: 065
  27. MIRABEGRON [Concomitant]
     Active Substance: MIRABEGRON
     Indication: Product used for unknown indication
     Dosage: 25 MILLIGRAM, ONCE A DAY
     Route: 065
  28. MONTELUKAST [Concomitant]
     Active Substance: MONTELUKAST SODIUM
     Indication: Product used for unknown indication
     Dosage: 10 MILLIGRAM, ONCE A DAY
     Route: 065
  29. OMEPRAZOLE [Concomitant]
     Active Substance: DONEPEZIL HYDROCHLORIDE\OMEPRAZOLE\OMEPRAZOLE MAGNESIUM
     Indication: Product used for unknown indication
     Dosage: 40 MILLIGRAM, ONCE A DAY (10 MCG PER DOSE 2 SPRAYSNASAL SPRAY FREQUENCY TEXT: NIGH)
     Route: 065
  30. RIVAROXABAN [Concomitant]
     Active Substance: RIVAROXABAN
     Indication: Product used for unknown indication
     Dosage: 20 MILLIGRAM, ONCE A DAY
     Route: 065
  31. SENNA [Concomitant]
     Active Substance: SENNA LEAF\SENNOSIDES\SENNOSIDES A AND B
     Indication: Product used for unknown indication
     Dosage: 7.5 MILLIGRAM, ONCE A DAY
     Route: 065
  32. SINEMET CR [Concomitant]
     Active Substance: CARBIDOPA\LEVODOPA
     Indication: Product used for unknown indication
     Dosage: 125 MILLIGRAM (HALF)
     Route: 065
  33. VITAMIN B [Concomitant]
     Active Substance: VITAMIN B
     Indication: Product used for unknown indication
     Dosage: UNK UNK, ONCE A DAY
     Route: 065
  34. VITAMIN B COMPLEX NOS [Concomitant]
     Active Substance: CYANOCOBALAMIN\PYRIDOXINE HYDROCHLORIDE\RIBOFLAVIN\SODIUM PANTOTHENATE\THIAMINE HYDROCHLORIDE\VITAMI
     Indication: Product used for unknown indication
     Dosage: 1 DOSAGE FORM, ONCE A DAY (STRONG ONCE DAILY; ;)
     Route: 065

REACTIONS (27)
  - Parkinson^s disease [Unknown]
  - Fall [Not Recovered/Not Resolved]
  - Poor quality sleep [Unknown]
  - Back pain [Unknown]
  - Head injury [Unknown]
  - Mobility decreased [Recovering/Resolving]
  - Dyskinesia [Unknown]
  - Blood pressure abnormal [Unknown]
  - Contusion [Unknown]
  - Feeling abnormal [Unknown]
  - Freezing phenomenon [Not Recovered/Not Resolved]
  - Weight decreased [Recovered/Resolved]
  - Depressed mood [Unknown]
  - Condition aggravated [Unknown]
  - Decreased appetite [Unknown]
  - Bradykinesia [Unknown]
  - Balance disorder [Unknown]
  - Crying [Unknown]
  - Abnormal dreams [Unknown]
  - Amnesia [Unknown]
  - On and off phenomenon [Unknown]
  - Muscle rigidity [Unknown]
  - Stress [Unknown]
  - Gait disturbance [Unknown]
  - Device dislocation [Not Recovered/Not Resolved]
  - Drug interaction [Unknown]
  - Therapeutic product effect incomplete [Unknown]

NARRATIVE: CASE EVENT DATE: 20231001
